FAERS Safety Report 23674815 (Version 1)
Quarter: 2024Q1

REPORT INFORMATION
  Report Type: Spontaneous
  Country: CN (occurrence: CN)
  Receive Date: 20240326
  Receipt Date: 20240326
  Transmission Date: 20240410
  Serious: Yes (Other)
  Sender: FDA-Public Use
  Company Number: CN-009507513-2403CHN008057

PATIENT
  Age: 65 Year
  Sex: Male

DRUGS (3)
  1. KEYTRUDA [Suspect]
     Active Substance: PEMBROLIZUMAB
     Indication: Lung adenocarcinoma
     Dosage: UNK
     Dates: start: 20210315
  2. PEMETREXED [Suspect]
     Active Substance: PEMETREXED
     Indication: Lung adenocarcinoma
     Dosage: UNK
     Dates: start: 20210315
  3. CARBOPLATIN [Suspect]
     Active Substance: CARBOPLATIN
     Indication: Lung adenocarcinoma
     Dosage: UNK
     Dates: start: 20210315

REACTIONS (7)
  - Febrile neutropenia [Recovering/Resolving]
  - Septic shock [Recovering/Resolving]
  - Pneumonia [Recovering/Resolving]
  - Immune-mediated hepatitis [Recovering/Resolving]
  - Immune-mediated thyroiditis [Recovering/Resolving]
  - Hepatic function abnormal [Unknown]
  - Primary hypothyroidism [Recovering/Resolving]

NARRATIVE: CASE EVENT DATE: 20210415
